FAERS Safety Report 7753367 (Version 3)
Quarter: 2013Q3

REPORT INFORMATION
  Report Type: Spontaneous
  Country: US (occurrence: US)
  Receive Date: 20110110
  Receipt Date: 20130710
  Transmission Date: 20140515
  Serious: Yes (Other)
  Sender: FDA-Public Use
  Company Number: US-JNJFOC-20101109045

PATIENT
  Age: 54 Year
  Sex: Female
  Weight: 117.03 kg

DRUGS (30)
  1. REMICADE [Suspect]
     Indication: RHEUMATOID ARTHRITIS
     Route: 042
  2. REMICADE [Suspect]
     Indication: RHEUMATOID ARTHRITIS
     Route: 042
     Dates: start: 20090721
  3. REMICADE [Suspect]
     Indication: RHEUMATOID ARTHRITIS
     Route: 042
     Dates: start: 20090608
  4. REMICADE [Suspect]
     Indication: RHEUMATOID ARTHRITIS
     Route: 042
     Dates: start: 20090427
  5. REMICADE [Suspect]
     Indication: RHEUMATOID ARTHRITIS
     Route: 042
     Dates: start: 20090316
  6. REMICADE [Suspect]
     Indication: RHEUMATOID ARTHRITIS
     Route: 042
     Dates: start: 20090114
  7. REMICADE [Suspect]
     Indication: RHEUMATOID ARTHRITIS
     Route: 042
     Dates: start: 20080104
  8. LIPITOR [Concomitant]
  9. PREDNISONE [Concomitant]
  10. FOSAMAX [Concomitant]
  11. METHOTREXATE [Concomitant]
  12. ACTONEL [Concomitant]
  13. ARAVA [Concomitant]
  14. HYDROCORTISONE [Concomitant]
  15. APAP [Concomitant]
  16. ASPIRIN [Concomitant]
     Route: 048
  17. CORAL CALCIUM [Concomitant]
  18. FISH OIL [Concomitant]
     Route: 048
  19. LEVOTHYROXINE [Concomitant]
     Route: 048
  20. MULTIVITAMINS [Concomitant]
  21. NAPROSYN [Concomitant]
  22. PAXIL [Concomitant]
     Route: 048
  23. TYLENOL ARTHRITIS [Concomitant]
     Route: 048
     Dates: start: 20081118
  24. ZOFRAN [Concomitant]
     Indication: PREMEDICATION
     Route: 042
     Dates: start: 20090316
  25. ZYRTEC [Concomitant]
     Dates: start: 20081118
  26. DEPO-MEDROL [Concomitant]
     Route: 030
  27. PREDNISONE [Concomitant]
     Route: 048
  28. TYLENOL [Concomitant]
     Indication: PREMEDICATION
     Dosage: DOSE TOOK AT HOME
     Route: 048
     Dates: start: 20090721
  29. BENADRYL [Concomitant]
     Indication: PREMEDICATION
     Dosage: TOOK AT HOME
     Route: 048
     Dates: start: 20090721
  30. ZOFRAN [Concomitant]
     Indication: PREMEDICATION
     Dosage: DOSE TOOK AT HOME
     Route: 048
     Dates: start: 20090721

REACTIONS (16)
  - Loss of consciousness [Not Recovered/Not Resolved]
  - Abasia [Unknown]
  - Infusion related reaction [Recovered/Resolved]
  - Asthenia [Unknown]
  - Vomiting [Recovered/Resolved]
  - Blood pressure decreased [Recovered/Resolved]
  - Dizziness [Recovered/Resolved]
  - Myalgia [Unknown]
  - Pallor [Recovered/Resolved]
  - Hypertension [Unknown]
  - Tremor [Recovered/Resolved]
  - Feeling cold [Recovered/Resolved]
  - Nausea [Recovered/Resolved]
  - Musculoskeletal stiffness [Unknown]
  - Arthralgia [Unknown]
  - Fatigue [Unknown]
